FAERS Safety Report 20038762 (Version 1)
Quarter: 2021Q4

REPORT INFORMATION
  Report Type: Report from Study
  Country: CA (occurrence: CA)
  Receive Date: 20211105
  Receipt Date: 20211105
  Transmission Date: 20220303
  Serious: Yes (Other)
  Sender: FDA-Public Use
  Company Number: CA-AMGEN-CANSL2021137400

PATIENT
  Age: 78 Year
  Sex: Female

DRUGS (5)
  1. PROLIA [Suspect]
     Active Substance: DENOSUMAB
     Indication: Osteoporosis postmenopausal
     Dosage: 60 MG/ML
     Route: 065
     Dates: start: 2016, end: 2018
  2. CALCIUM [CALCIUM GLYCEROPHOSPHATE] [Concomitant]
     Indication: Product used for unknown indication
     Dosage: UNK
  3. CALCIUM [CALCIUM GLYCEROPHOSPHATE] [Concomitant]
     Route: 065
  4. PROVITAL [Concomitant]
     Indication: Product used for unknown indication
     Route: 065
  5. ERGOCALCIFEROL [Concomitant]
     Active Substance: ERGOCALCIFEROL
     Indication: Product used for unknown indication
     Route: 065

REACTIONS (1)
  - Myelitis transverse [Not Recovered/Not Resolved]

NARRATIVE: CASE EVENT DATE: 20180101
